FAERS Safety Report 15275986 (Version 5)
Quarter: 2020Q2

REPORT INFORMATION
  Report Type: Report from Study
  Country: CA (occurrence: CA)
  Receive Date: 20180814
  Receipt Date: 20200511
  Transmission Date: 20200713
  Serious: Yes (Other)
  Sender: FDA-Public Use
  Company Number: PHHY2017CA060369

PATIENT
  Age: 75 Year
  Sex: Female

DRUGS (5)
  1. AMLODIPIN [Concomitant]
     Active Substance: AMLODIPINE BESYLATE
     Dosage: 5 UNK
     Route: 065
  2. SANDOSTATIN LAR DEPOT [Suspect]
     Active Substance: OCTREOTIDE ACETATE
     Indication: CARCINOID SYNDROME
     Dosage: 30 MG, QMO
     Route: 030
     Dates: start: 20160602, end: 20161031
  3. SANDOSTATIN LAR DEPOT [Suspect]
     Active Substance: OCTREOTIDE ACETATE
     Dosage: 30 MG, QMO
     Route: 065
     Dates: start: 20170424
  4. SANDOSTATIN LAR DEPOT [Suspect]
     Active Substance: OCTREOTIDE ACETATE
     Dosage: 50 MG, QMO
     Route: 030
  5. AMLODIPIN [Concomitant]
     Active Substance: AMLODIPINE BESYLATE
     Indication: PRODUCT USED FOR UNKNOWN INDICATION
     Dosage: 10 MG, QD
     Route: 065
     Dates: start: 201707

REACTIONS (20)
  - Influenza [Unknown]
  - Fall [Unknown]
  - Memory impairment [Unknown]
  - Blood pressure systolic increased [Unknown]
  - Syncope [Unknown]
  - Vein disorder [Unknown]
  - Depressed mood [Unknown]
  - Blood pressure decreased [Unknown]
  - Hypertension [Recovering/Resolving]
  - Psychiatric symptom [Unknown]
  - Asthenia [Unknown]
  - Dizziness [Unknown]
  - Fatigue [Unknown]
  - Body temperature decreased [Unknown]
  - Weight decreased [Unknown]
  - Feeling abnormal [Unknown]
  - Performance status decreased [Unknown]
  - Contusion [Unknown]
  - Anxiety [Unknown]
  - Amnesia [Unknown]

NARRATIVE: CASE EVENT DATE: 2017
